FAERS Safety Report 11246508 (Version 1)
Quarter: 2015Q3

REPORT INFORMATION
  Report Type: Spontaneous
  Country: US (occurrence: None)
  Receive Date: 20150706
  Receipt Date: 20150706
  Transmission Date: 20151125
  Serious: Yes (Disabling)
  Sender: FDA-Public Use
  Company Number: None

PATIENT
  Age: 46 Year
  Sex: Female
  Weight: 63.5 kg

DRUGS (1)
  1. DYMISTA [Suspect]
     Active Substance: AZELASTINE HYDROCHLORIDE\FLUTICASONE PROPIONATE
     Indication: SINUSITIS
     Dosage: 1 SPRAY EACH NOSTRIL
     Route: 055
     Dates: start: 20150501, end: 20150530

REACTIONS (2)
  - Diarrhoea [None]
  - Gastrointestinal pain [None]

NARRATIVE: CASE EVENT DATE: 20150517
